FAERS Safety Report 9505855 (Version 1)
Quarter: 2013Q1

REPORT INFORMATION
  Report Type: Spontaneous
  Country: US (occurrence: None)
  Receive Date: 20130219
  Receipt Date: 20130219
  Transmission Date: 20140127
  Serious: Yes (Hospitalization, Other)
  Sender: FDA-Public Use
  Company Number: 1207USA009774

PATIENT
  Age: 43 Year
  Sex: Male

DRUGS (6)
  1. ZOCOR (SIMVASTATIN) [Suspect]
     Route: 048
  2. ACETAMINOPHEN (ACETAMINOPHEN) [Concomitant]
  3. COD LIVER OIL (COD LIVER OIL) [Concomitant]
  4. ZINC (UNSPECIFIED) (ZINC (UNSPECIFIED)) [Concomitant]
  5. VITAMINS (UNSPECIFIED) (VITAMINS (UNSPECIFIED)) [Concomitant]
  6. ASCORBIC ACID (ASCORBIC ACID) [Concomitant]

REACTIONS (2)
  - Myositis [None]
  - Hepatitis [None]
